FAERS Safety Report 9641172 (Version 1)
Quarter: 2013Q4

REPORT INFORMATION
  Report Type: Spontaneous
  Country: IT (occurrence: IT)
  Receive Date: 20131023
  Receipt Date: 20131023
  Transmission Date: 20140711
  Serious: Yes (Hospitalization)
  Sender: FDA-Public Use
  Company Number: IT-PFIZER INC-2013299626

PATIENT
  Age: 30 Year
  Sex: Female

DRUGS (2)
  1. XANAX [Suspect]
     Dosage: 5 MG TOTAL
     Route: 048
     Dates: start: 20130715, end: 20130715
  2. CITALOPRAM HBR [Suspect]
     Dosage: 700 MG TOTAL
     Route: 048
     Dates: start: 20130715, end: 20130715

REACTIONS (2)
  - Sopor [Recovered/Resolved]
  - Drug abuse [Recovered/Resolved]
